FAERS Safety Report 5200974-5 (Version None)
Quarter: 2006Q4

REPORT INFORMATION
  Report Type: 
  Country: None (occurrence: None)
  Receive Date: 20061221
  Receipt Date: 20061211
  Transmission Date: 20070319
  Serious: Yes (Hospitalization)
  Sender: FDA-Public Use
  Company Number: 200610408BBE

PATIENT
  Age: 12 Year
  Sex: Male

DRUGS (3)
  1. HYPERRAB S/D [Suspect]
     Indication: ANIMAL BITE
     Dosage: INTRAMUSCULAR
     Route: 030
     Dates: start: 20061123
  2. HYPERRAB S/D [Suspect]
     Indication: ANIMAL BITE
     Dosage: INTRAMUSCULAR
     Route: 030
     Dates: start: 20061127
  3. HDCV VACCINE (RABIES VACCINE) [Suspect]
     Dosage: INTRAMUSCULAR
     Route: 030
     Dates: start: 20061123

REACTIONS (14)
  - ANOREXIA [None]
  - CHILLS [None]
  - DELIRIUM [None]
  - DISORIENTATION [None]
  - DIZZINESS [None]
  - EYE DISORDER [None]
  - FEELING COLD [None]
  - FLUID INTAKE REDUCED [None]
  - HEADACHE [None]
  - HYPERHIDROSIS [None]
  - JAW DISORDER [None]
  - PYREXIA [None]
  - TREMOR [None]
  - WRONG TECHNIQUE IN DRUG USAGE PROCESS [None]
